FAERS Safety Report 18819727 (Version 2)
Quarter: 2021Q1

REPORT INFORMATION
  Report Type: Report from Study
  Country: US (occurrence: US)
  Receive Date: 20210202
  Receipt Date: 20210304
  Transmission Date: 20210419
  Serious: Yes (Hospitalization)
  Sender: FDA-Public Use
  Company Number: US-PFIZER INC-2021051887

PATIENT
  Age: 54 Year
  Sex: Female
  Weight: 65.5 kg

DRUGS (2)
  1. PF?05212384 [Suspect]
     Active Substance: GEDATOLISIB
     Indication: BREAST CANCER
     Dosage: 180 MG, WEEKLY
     Route: 042
     Dates: start: 20210106, end: 20210113
  2. TALAZOPARIB. [Suspect]
     Active Substance: TALAZOPARIB
     Indication: BREAST CANCER
     Dosage: 1 MG, DAILY
     Route: 048
     Dates: start: 20210106, end: 20210118

REACTIONS (1)
  - Pyrexia [Recovered/Resolved]

NARRATIVE: CASE EVENT DATE: 20210118
